FAERS Safety Report 6930649-3 (Version None)
Quarter: 2010Q3

REPORT INFORMATION
  Report Type: 
  Country: None (occurrence: None)
  Receive Date: 20100818
  Receipt Date: 20100426
  Transmission Date: 20110219
  Serious: No
  Sender: FDA-Public Use
  Company Number: A0856742A

PATIENT
  Age: 78 Year
  Sex: Female

DRUGS (4)
  1. COREG CR [Suspect]
     Indication: HYPERTENSION
     Dosage: 40MG PER DAY
     Route: 048
     Dates: start: 20090101
  2. VASOTEC [Concomitant]
  3. ZETIA [Concomitant]
  4. SYNTHROID [Concomitant]

REACTIONS (2)
  - ABNORMAL DREAMS [None]
  - NIGHTMARE [None]
